FAERS Safety Report 8071999-X (Version None)
Quarter: 2012Q1

REPORT INFORMATION
  Report Type: 
  Country: None (occurrence: None)
  Receive Date: 20120119
  Receipt Date: 20120109
  Transmission Date: 20120608
  Serious: Yes (Other)
  Sender: FDA-Public Use
  Company Number: AUR-APL-2012-00451

PATIENT
  Age: 20 Year
  Sex: Male

DRUGS (1)
  1. TOPIRAMATE [Suspect]
     Indication: HEADACHE
     Dosage: 25 MG (25 MG, 1 IN 1 D)

REACTIONS (2)
  - CHOROIDAL EFFUSION [None]
  - ANGLE CLOSURE GLAUCOMA [None]
